FAERS Safety Report 9158739 (Version 3)
Quarter: 2013Q2

REPORT INFORMATION
  Report Type: Report from Study
  Country: IT (occurrence: IT)
  Receive Date: 20130312
  Receipt Date: 20130425
  Transmission Date: 20140414
  Serious: Yes (Hospitalization, Other)
  Sender: FDA-Public Use
  Company Number: IT-TEVA-391370USA

PATIENT
  Age: 70 Year
  Sex: Female

DRUGS (8)
  1. TREANDA [Suspect]
     Indication: MANTLE CELL LYMPHOMA
     Route: 042
     Dates: start: 20121217, end: 20130215
  2. RITUXIMAB [Suspect]
     Indication: MANTLE CELL LYMPHOMA
     Route: 042
     Dates: start: 20121217, end: 20130215
  3. ARA-C [Suspect]
     Indication: MANTLE CELL LYMPHOMA
     Route: 042
     Dates: start: 20121217, end: 20130215
  4. OLMESARTAN MEDOXOMIL [Concomitant]
     Dates: start: 201201, end: 20130226
  5. SULFAMETHOXAZOLE, TRIMETHOPRIM [Concomitant]
     Dates: start: 20121217, end: 20130222
  6. LAMIVUDINE [Concomitant]
     Dates: start: 20121210, end: 20130226
  7. GRANULOKINE [Concomitant]
     Dates: start: 20120217, end: 20130222
  8. TRIMETOPRIM [Concomitant]
     Dates: start: 20121217, end: 20130222

REACTIONS (4)
  - Pancytopenia [Unknown]
  - Loss of consciousness [Unknown]
  - Pyrexia [Unknown]
  - Gastritis [Unknown]
